FAERS Safety Report 9431810 (Version 1)
Quarter: 2013Q3

REPORT INFORMATION
  Report Type: Spontaneous
  Country: US (occurrence: None)
  Receive Date: 20130726
  Receipt Date: 20130726
  Transmission Date: 20140515
  Serious: Yes (Hospitalization)
  Sender: FDA-Public Use
  Company Number: AUR-APL-2013-06047

PATIENT
  Age: 65 Year
  Sex: Female

DRUGS (3)
  1. TRIMETHOPRIM+SULFAMETHOXAZOLE [Suspect]
     Indication: CELLULITIS
     Dosage: 2 DOSAGE FORMS (1 DOSAGE FORMS, 2 IN 1 D)
  2. JANUVIA (SITAGLIPTIN PHOSPHATE) [Concomitant]
  3. REBIF (INTERFERON BETA 1A) [Concomitant]
     Dosage: 2 DOSAGE FORMS ( 1 DOSAGE FORMS 2 IN 1 D)

REACTIONS (8)
  - Somnolence [None]
  - Rash [None]
  - Rash [None]
  - Rash [None]
  - Rash [None]
  - Skin disorder [None]
  - Asthenia [None]
  - Pruritus [None]
